FAERS Safety Report 17875540 (Version 1)
Quarter: 2020Q2

REPORT INFORMATION
  Report Type: Spontaneous
  Country: US (occurrence: US)
  Receive Date: 20200609
  Receipt Date: 20200609
  Transmission Date: 20200714
  Serious: No
  Sender: FDA-Public Use
  Company Number: US-JNJFOC-20200607461

PATIENT

DRUGS (1)
  1. YONDELIS [Suspect]
     Active Substance: TRABECTEDIN
     Indication: LIPOSARCOMA METASTATIC
     Route: 042

REACTIONS (4)
  - Device leakage [Unknown]
  - Swelling [Recovering/Resolving]
  - Extravasation [Recovering/Resolving]
  - Erythema [Recovering/Resolving]
